FAERS Safety Report 12427269 (Version 1)
Quarter: 2016Q2

REPORT INFORMATION
  Report Type: Report from Study
  Country: US (occurrence: US)
  Receive Date: 20160602
  Receipt Date: 20160602
  Transmission Date: 20160815
  Serious: Yes (Other)
  Sender: FDA-Public Use
  Company Number: US-ROCHE-1766928

PATIENT

DRUGS (6)
  1. PROCARBAZINE [Suspect]
     Active Substance: PROCARBAZINE
     Indication: LYMPHOMA
     Dosage: FOR 7 DAYS WITH ODD CYCLES ONLY
     Route: 048
  2. LEUCOVORIN. [Concomitant]
     Active Substance: LEUCOVORIN
  3. VINCRISTINE [Suspect]
     Active Substance: VINCRISTINE
     Indication: LYMPHOMA
     Dosage: 1.4 MG/M2 CAPPED AT 2 MG ON DAY 1) GIVEN EVERY 2 WEEKS FOR 5 CYCLES.
     Route: 042
  4. METHOTREXATE [Suspect]
     Active Substance: METHOTREXATE
     Indication: LYMPHOMA
     Dosage: OVER 2 H DAY 1 FOLLOWED BY LEUCOVORIN RESCUE
     Route: 042
  5. METHOTREXATE [Suspect]
     Active Substance: METHOTREXATE
     Route: 037
  6. RITUXIMAB [Suspect]
     Active Substance: RITUXIMAB
     Indication: LYMPHOMA
     Dosage: DAY 1
     Route: 042

REACTIONS (10)
  - Anaemia [Unknown]
  - Thrombocytopenia [Unknown]
  - Neutropenia [Unknown]
  - Cataract [Unknown]
  - Lacrimation increased [Unknown]
  - Vision blurred [Unknown]
  - Blood creatinine increased [Unknown]
  - Keratitis [Unknown]
  - Renal impairment [Unknown]
  - Peripheral sensory neuropathy [Unknown]
